FAERS Safety Report 15464149 (Version 1)
Quarter: 2018Q4

REPORT INFORMATION
  Report Type: Spontaneous
  Country: FR (occurrence: FR)
  Receive Date: 20181004
  Receipt Date: 20181004
  Transmission Date: 20190204
  Serious: Yes (Death, Other)
  Sender: FDA-Public Use
  Company Number: FR-ELI_LILLY_AND_COMPANY-FR201810000967

PATIENT
  Sex: Female

DRUGS (4)
  1. ABILIFY [Suspect]
     Active Substance: ARIPIPRAZOLE
     Indication: BIPOLAR DISORDER
     Dosage: UNK UNK, UNKNOWN
     Route: 064
  2. PROZAC [Suspect]
     Active Substance: FLUOXETINE HYDROCHLORIDE
     Indication: BIPOLAR DISORDER
     Dosage: UNK, UNKNOWN
     Route: 064
  3. ABILIFY [Suspect]
     Active Substance: ARIPIPRAZOLE
     Indication: BIPOLAR DISORDER
     Dosage: UNK UNK, UNKNOWN
     Route: 064
  4. PROZAC [Suspect]
     Active Substance: FLUOXETINE HYDROCHLORIDE
     Indication: BIPOLAR DISORDER
     Dosage: UNK, UNKNOWN
     Route: 064

REACTIONS (6)
  - External auditory canal atresia [Fatal]
  - Sirenomelia [Fatal]
  - Cleft lip and palate [Fatal]
  - Adactyly [Fatal]
  - Foetal exposure timing unspecified [Unknown]
  - Limb hypoplasia congenital [Fatal]

NARRATIVE: CASE EVENT DATE: 2017
